FAERS Safety Report 20597494 (Version 3)
Quarter: 2022Q2

REPORT INFORMATION
  Report Type: Spontaneous
  Country: CA (occurrence: CA)
  Receive Date: 20220315
  Receipt Date: 20220502
  Transmission Date: 20220721
  Serious: Yes (Hospitalization, Other)
  Sender: FDA-Public Use
  Company Number: CA-BAUSCH-BL-2022-006516

PATIENT
  Age: 14 Year
  Sex: Female
  Weight: 49 kg

DRUGS (5)
  1. RIFAXIMIN [Suspect]
     Active Substance: RIFAXIMIN
     Indication: Constipation
     Route: 065
     Dates: start: 20210420, end: 20210515
  2. RIFAXIMIN [Suspect]
     Active Substance: RIFAXIMIN
     Indication: Gastrointestinal bacterial overgrowth
  3. DIANE (CYPROTERONE ACETATE\ETHINYL ESTRADIOL) [Concomitant]
     Active Substance: CYPROTERONE ACETATE\ETHINYL ESTRADIOL
     Indication: Acne
  4. ADDERALL [Concomitant]
     Active Substance: AMPHETAMINE ASPARTATE\AMPHETAMINE SULFATE\DEXTROAMPHETAMINE SACCHARATE\DEXTROAMPHETAMINE SULFATE
     Indication: Attention deficit hyperactivity disorder
  5. INTUNIV [Concomitant]
     Active Substance: GUANFACINE HYDROCHLORIDE
     Indication: Attention deficit hyperactivity disorder

REACTIONS (21)
  - Hepatic cirrhosis [Not Recovered/Not Resolved]
  - Weight decreased [Not Recovered/Not Resolved]
  - Illness [Not Recovered/Not Resolved]
  - Dysstasia [Not Recovered/Not Resolved]
  - Gait disturbance [Not Recovered/Not Resolved]
  - Chest pain [Recovered/Resolved]
  - Eating disorder [Not Recovered/Not Resolved]
  - Gastrooesophageal reflux disease [Not Recovered/Not Resolved]
  - Muscle injury [Not Recovered/Not Resolved]
  - Dysphagia [Not Recovered/Not Resolved]
  - Eye disorder [Not Recovered/Not Resolved]
  - Vision blurred [Not Recovered/Not Resolved]
  - Vitamin A increased [Not Recovered/Not Resolved]
  - Muscular weakness [Not Recovered/Not Resolved]
  - Peripheral coldness [Not Recovered/Not Resolved]
  - Constipation [Not Recovered/Not Resolved]
  - Fatigue [Not Recovered/Not Resolved]
  - Dizziness [Not Recovered/Not Resolved]
  - Abdominal discomfort [Not Recovered/Not Resolved]
  - Abdominal distension [Not Recovered/Not Resolved]
  - Product use issue [Unknown]

NARRATIVE: CASE EVENT DATE: 20210401
